FAERS Safety Report 15956100 (Version 2)
Quarter: 2019Q1

REPORT INFORMATION
  Report Type: Report from Study
  Country: CA (occurrence: CA)
  Receive Date: 20190213
  Receipt Date: 20190219
  Transmission Date: 20190417
  Serious: Yes (Other)
  Sender: FDA-Public Use
  Company Number: CA-JNJFOC-20181214426

PATIENT
  Age: 59 Year
  Sex: Female
  Weight: 68.2 kg

DRUGS (2)
  1. SIMPONI [Suspect]
     Active Substance: GOLIMUMAB
     Indication: COLITIS ULCERATIVE
     Dosage: STRENGTH = 100 MG
     Route: 058
     Dates: start: 20181005, end: 20190211
  2. SIMPONI [Suspect]
     Active Substance: GOLIMUMAB
     Indication: PSORIASIS
     Dosage: STRENGTH = 100 MG
     Route: 058
     Dates: start: 20181005, end: 20190211

REACTIONS (13)
  - Diarrhoea [Not Recovered/Not Resolved]
  - Dysphagia [Unknown]
  - Upper respiratory tract infection [Unknown]
  - Nasopharyngitis [Not Recovered/Not Resolved]
  - Throat irritation [Unknown]
  - Haematochezia [Unknown]
  - Pruritus generalised [Unknown]
  - Vision blurred [Unknown]
  - General physical health deterioration [Unknown]
  - Proctalgia [Not Recovered/Not Resolved]
  - Acute sinusitis [Recovering/Resolving]
  - Thyroid disorder [Unknown]
  - Nausea [Unknown]

NARRATIVE: CASE EVENT DATE: 2018
